FAERS Safety Report 5161041-2 (Version None)
Quarter: 2006Q4

REPORT INFORMATION
  Report Type: 
  Country: None (occurrence: None)
  Receive Date: 20061121
  Receipt Date: 20061113
  Transmission Date: 20070319
  Serious: Yes (Other)
  Sender: FDA-Public Use
  Company Number: 2006140462

PATIENT
  Age: 60 Year
  Sex: Male

DRUGS (1)
  1. FELDENE [Suspect]
     Indication: GOUT
     Dosage: PARENTERAL
     Route: 051

REACTIONS (1)
  - CEREBROVASCULAR ACCIDENT [None]
